FAERS Safety Report 9301584 (Version 1)
Quarter: 2012Q4

REPORT INFORMATION
  Report Type: Spontaneous
  Country: US (occurrence: None)
  Receive Date: 20121109
  Receipt Date: 20121109
  Transmission Date: 20130627
  Serious: Yes (Other)
  Sender: FDA-Public Use
  Company Number: 2011S1000931

PATIENT

DRUGS (3)
  1. CUBICIN [Suspect]
     Indication: OSTEOMYELITIS
  2. VANCOMYCIN [Suspect]
     Indication: OSTEOMYELITIS
  3. CIPROFLOXACIN [Suspect]
     Indication: OSTEOMYELITIS

REACTIONS (3)
  - Osteomyelitis [None]
  - Treatment failure [None]
  - Off label use [None]
